FAERS Safety Report 13399590 (Version 1)
Quarter: 2017Q2

REPORT INFORMATION
  Report Type: Spontaneous
  Country: US (occurrence: US)
  Receive Date: 20170403
  Receipt Date: 20170403
  Transmission Date: 20170830
  Serious: Yes (Hospitalization)
  Sender: FDA-Public Use
  Company Number: None

PATIENT
  Age: 10 Year
  Sex: Female
  Weight: 40.5 kg

DRUGS (3)
  1. HUMAN GROWTH HORMONE [Concomitant]
     Active Substance: SOMATROPIN
  2. PHARMANAC [Concomitant]
  3. PURE AND GENTLE LAXATIVE [Suspect]
     Active Substance: SODIUM PHOSPHATE, DIBASIC\SODIUM PHOSPHATE, MONOBASIC
     Indication: CONSTIPATION
     Dosage: ?          QUANTITY:118 ML;OTHER FREQUENCY:ONCE;?
     Route: 054
     Dates: start: 20170331

REACTIONS (3)
  - Erythema [None]
  - Rash generalised [None]
  - Feeling hot [None]

NARRATIVE: CASE EVENT DATE: 20170331
